FAERS Safety Report 15627023 (Version 1)
Quarter: 2018Q4

REPORT INFORMATION
  Report Type: Spontaneous
  Country: HU (occurrence: HU)
  Receive Date: 20181116
  Receipt Date: 20181116
  Transmission Date: 20190205
  Serious: Yes (Death, Hospitalization)
  Sender: FDA-Public Use
  Company Number: HU-JNJFOC-20181118724

PATIENT
  Age: 67 Year
  Sex: Male

DRUGS (1)
  1. GOLIMUMAB [Suspect]
     Active Substance: GOLIMUMAB
     Indication: ANKYLOSING SPONDYLITIS
     Route: 058
     Dates: start: 20140901

REACTIONS (6)
  - Spinal cord disorder [Unknown]
  - Decubitus ulcer [Unknown]
  - Cervical vertebral fracture [Unknown]
  - Quadriplegia [Unknown]
  - Sepsis [Unknown]
  - Road traffic accident [Fatal]

NARRATIVE: CASE EVENT DATE: 201511
